FAERS Safety Report 8112622-5 (Version None)
Quarter: 2012Q1

REPORT INFORMATION
  Report Type: 
  Country: None (occurrence: None)
  Receive Date: 20120131
  Receipt Date: 20120118
  Transmission Date: 20120608
  Serious: Yes (Life-Threatening, Hospitalization, Other)
  Sender: FDA-Public Use
  Company Number: 2012MA000882

PATIENT
  Sex: Male
  Weight: 72 kg

DRUGS (15)
  1. TENORMIN [Concomitant]
  2. ATIVAN [Concomitant]
  3. MOBIC [Concomitant]
  4. PREDNISOLONE [Concomitant]
  5. DIGOXIN [Suspect]
     Dosage: 0.125 MG;QD;PO
     Route: 048
     Dates: start: 20080220, end: 20090918
  6. LISINOPRIL [Concomitant]
  7. ASPIRIN [Concomitant]
  8. PLAVIX [Concomitant]
  9. CRESTOR [Concomitant]
  10. OMEPRAZOLE [Concomitant]
  11. COMBIVENT [Concomitant]
  12. ZOLOFT [Concomitant]
  13. ADVAIR DISKUS 100/50 [Concomitant]
  14. ELAVIL [Concomitant]
  15. REGLAN [Concomitant]

REACTIONS (25)
  - HYPERKALAEMIA [None]
  - ANXIETY [None]
  - HYPERCHOLESTEROLAEMIA [None]
  - HYPOTENSION [None]
  - INTERSTITIAL LUNG DISEASE [None]
  - ILEUS [None]
  - DEFICIENCY ANAEMIA [None]
  - BLOOD PRESSURE FLUCTUATION [None]
  - RESPIRATORY ALKALOSIS [None]
  - ORTHOSTATIC HYPOTENSION [None]
  - VASCULAR CALCIFICATION [None]
  - LOSS OF CONSCIOUSNESS [None]
  - COLONIC POLYP [None]
  - ARTERIOSCLEROSIS CORONARY ARTERY [None]
  - TACHYCARDIA [None]
  - LEUKOCYTOSIS [None]
  - CHRONIC OBSTRUCTIVE PULMONARY DISEASE [None]
  - METABOLIC ACIDOSIS [None]
  - CONSTIPATION [None]
  - HYPOXIA [None]
  - HYPERTENSION [None]
  - RECTAL HAEMORRHAGE [None]
  - ACID-BASE BALANCE DISORDER MIXED [None]
  - GASTROOESOPHAGEAL REFLUX DISEASE [None]
  - GASTRIC VARICES [None]
